FAERS Safety Report 8476802-1 (Version None)
Quarter: 2012Q2

REPORT INFORMATION
  Report Type: 
  Country: None (occurrence: None)
  Receive Date: 20120628
  Receipt Date: 20120625
  Transmission Date: 20120825
  Serious: Yes (Hospitalization)
  Sender: FDA-Public Use
  Company Number: US-AMGEN-USASP2012038681

PATIENT
  Age: 80 Year
  Sex: Female
  Weight: 79 kg

DRUGS (5)
  1. CARBOPLATIN [Concomitant]
     Indication: NON-SMALL CELL LUNG CANCER
     Dosage: 140 MG, QWK
     Route: 042
     Dates: start: 20120323, end: 20120616
  2. ONDANSETRON [Concomitant]
     Indication: NON-SMALL CELL LUNG CANCER
     Dosage: 8 MG, QWK
     Route: 048
     Dates: start: 20120323, end: 20120616
  3. PACLITAXEL [Concomitant]
     Indication: NON-SMALL CELL LUNG CANCER
     Dosage: 90 MG, QWK
     Route: 042
     Dates: start: 20120323, end: 20120616
  4. DEXAMETHASONE [Concomitant]
     Indication: NON-SMALL CELL LUNG CANCER
     Dosage: 12 MG, QWK
     Route: 048
     Dates: start: 20120323, end: 20120616
  5. XGEVA [Suspect]
     Indication: METASTASES TO BONE
     Dosage: 120 MG, UNK
     Route: 058
     Dates: start: 20120531, end: 20120531

REACTIONS (2)
  - PNEUMONIA [None]
  - HYPOCALCAEMIA [None]
